FAERS Safety Report 9935647 (Version 3)
Quarter: 2014Q2

REPORT INFORMATION
  Report Type: Report from Study
  Country: JP (occurrence: JP)
  Receive Date: 20140228
  Receipt Date: 20140627
  Transmission Date: 20141212
  Serious: Yes (Other)
  Sender: FDA-Public Use
  Company Number: JP-B.I. PHARMACEUTICALS,INC./RIDGEFIELD-2014-BI-08137NB

PATIENT
  Age: 76 Year
  Sex: Male
  Weight: 74 kg

DRUGS (2)
  1. PRAZAXA [Suspect]
     Indication: CEREBROVASCULAR ACCIDENT PROPHYLAXIS
     Dosage: 300 MG
     Route: 048
     Dates: start: 20131104, end: 20131107
  2. WARFARIN [Concomitant]
     Indication: PROPHYLAXIS
     Dosage: 1.5 MG
     Route: 048
     Dates: start: 20131111

REACTIONS (2)
  - Cardiac ventricular thrombosis [Unknown]
  - Drug effect incomplete [Unknown]
